FAERS Safety Report 5104968-X (Version None)
Quarter: 2006Q3

REPORT INFORMATION
  Report Type: 
  Country: None (occurrence: None)
  Receive Date: 20060911
  Receipt Date: 20060828
  Transmission Date: 20061208
  Serious: Yes (Hospitalization, Other)
  Sender: FDA-Public Use
  Company Number: 2006068506

PATIENT
  Age: 23 Year
  Sex: Female

DRUGS (3)
  1. CELEBREX [Suspect]
     Indication: ARTHRITIS
     Dosage: 200 MG (200 MG, 1 IN 1 D)
     Dates: start: 19990801, end: 20000801
  2. CELEBREX [Suspect]
     Indication: NECK INJURY
     Dosage: 200 MG (200 MG, 1 IN 1 D)
     Dates: start: 19990801, end: 20000801
  3. CELEBREX [Suspect]
     Indication: TORTICOLLIS
     Dosage: 200 MG (200 MG, 1 IN 1 D)
     Dates: start: 19990801, end: 20000801

REACTIONS (3)
  - CEREBROVASCULAR ACCIDENT [None]
  - GALLBLADDER OPERATION [None]
  - HYPERTENSION [None]
